FAERS Safety Report 6095989-1 (Version None)
Quarter: 2009Q1

REPORT INFORMATION
  Report Type: 
  Country: None (occurrence: None)
  Receive Date: 20090227
  Receipt Date: 20080813
  Transmission Date: 20090719
  Serious: Yes (Hospitalization)
  Sender: FDA-Public Use
  Company Number: A0740585A

PATIENT
  Age: 42 Year
  Sex: Female
  Weight: 110.9 kg

DRUGS (1)
  1. LAMICTAL [Suspect]
     Dosage: 100MG UNKNOWN
     Route: 048
     Dates: start: 20080611, end: 20080725

REACTIONS (1)
  - DRUG INEFFECTIVE [None]
